FAERS Safety Report 20372348 (Version 1)
Quarter: 2022Q1

REPORT INFORMATION
  Report Type: Spontaneous
  Country: FR (occurrence: FR)
  Receive Date: 20220124
  Receipt Date: 20220124
  Transmission Date: 20220423
  Serious: Yes (Hospitalization, Other)
  Sender: FDA-Public Use
  Company Number: FR-CELLTRION INC.-2022FR000473

PATIENT

DRUGS (10)
  1. ADALIMUMAB [Suspect]
     Active Substance: ADALIMUMAB
     Indication: Pyoderma gangrenosum
     Dosage: WEEK ZERO
     Route: 065
  2. ADALIMUMAB [Suspect]
     Active Substance: ADALIMUMAB
     Dosage: WEEK 1
     Route: 065
  3. ADALIMUMAB [Suspect]
     Active Substance: ADALIMUMAB
     Dosage: EVERY 15 DAYS; WEEK 2
     Route: 065
  4. INFLIXIMAB [Suspect]
     Active Substance: INFLIXIMAB
     Indication: Pyoderma gangrenosum
     Dosage: WEEK 0
     Route: 065
  5. INFLIXIMAB [Suspect]
     Active Substance: INFLIXIMAB
     Dosage: WEEK 2
     Route: 065
  6. INFLIXIMAB [Suspect]
     Active Substance: INFLIXIMAB
     Dosage: WEEK 6
     Route: 065
  7. METHYLPREDNISOLONE [Concomitant]
     Active Substance: METHYLPREDNISOLONE
     Indication: Pyoderma gangrenosum
     Dosage: 1 G, QD
     Route: 040
  8. PREDNISONE [Concomitant]
     Active Substance: PREDNISONE
     Indication: Pyoderma gangrenosum
     Dosage: USED IN ASSOCIATION WITH THE FOLLOWING THERAPEUTICS
     Route: 048
  9. PREDNISONE [Concomitant]
     Active Substance: PREDNISONE
     Dosage: 1 MONTH IN MONOTHERAPY
     Route: 048
  10. ANAKINRA [Concomitant]
     Active Substance: ANAKINRA
     Indication: Pyoderma gangrenosum
     Dosage: 6 MONTHS (INCLUDING 3 MONTHS IN MONOTHERAPY AFTER COMPLETE WITHDRAWAL OF CORTICOSTEROIDS)
     Route: 058

REACTIONS (5)
  - Limb injury [Unknown]
  - Hyperaesthesia [Recovered/Resolved]
  - Pyoderma gangrenosum [Recovered/Resolved]
  - Off label use [Unknown]
  - Drug ineffective for unapproved indication [Unknown]
